FAERS Safety Report 9048016 (Version 2)
Quarter: 2013Q1

REPORT INFORMATION
  Report Type: Spontaneous
  Country: US (occurrence: US)
  Receive Date: 20130204
  Receipt Date: 20130305
  Transmission Date: 20140127
  Serious: No
  Sender: FDA-Public Use
  Company Number: US-AMGEN-USASP2013005820

PATIENT
  Sex: Male

DRUGS (4)
  1. ENBREL [Suspect]
     Indication: PSORIASIS
     Dosage: 50 MG, 2 TIMES/WK
     Dates: start: 2007
  2. ENBREL [Suspect]
     Indication: PSORIATIC ARTHROPATHY
  3. ASA [Concomitant]
     Dosage: UNK
  4. PLAVIX [Concomitant]
     Dosage: UNK

REACTIONS (1)
  - Increased tendency to bruise [Not Recovered/Not Resolved]
